FAERS Safety Report 16840281 (Version 1)
Quarter: 2019Q3

REPORT INFORMATION
  Report Type: Spontaneous
  Country: US (occurrence: US)
  Receive Date: 20190801
  Receipt Date: 20190801
  Transmission Date: 20191005
  Serious: Yes (Hospitalization)
  Sender: FDA-Public Use
  Company Number: None

PATIENT
  Sex: Male

DRUGS (14)
  1. TACROLIMUS 0.5MG [Suspect]
     Active Substance: TACROLIMUS
     Indication: LIVER TRANSPLANT
     Dosage: ?          OTHER DOSE:O.5MG;?
     Route: 048
     Dates: start: 20180809
  2. MELOXICAM. [Concomitant]
     Active Substance: MELOXICAM
  3. MULTI VITAMIN [Concomitant]
     Active Substance: VITAMINS
  4. TAMSULOSIN [Concomitant]
     Active Substance: TAMSULOSIN
  5. TACROLIMUS 1MG [Suspect]
     Active Substance: TACROLIMUS
     Indication: LIVER TRANSPLANT
     Route: 048
     Dates: start: 20180809
  6. SERTRALINE [Concomitant]
     Active Substance: SERTRALINE HYDROCHLORIDE
  7. METOPROL SUC [Concomitant]
  8. PENTOPRAZOLE [Concomitant]
  9. TRELEGY ELLIPTA [Concomitant]
     Active Substance: FLUTICASONE FUROATE\UMECLIDINIUM BROMIDE\VILANTEROL TRIFENATATE
  10. LISINOPRIL. [Concomitant]
     Active Substance: LISINOPRIL
  11. ROSUVASTATIN. [Concomitant]
     Active Substance: ROSUVASTATIN
  12. TRAMADOL. [Concomitant]
     Active Substance: TRAMADOL
  13. PROAIR HFA [Concomitant]
     Active Substance: ALBUTEROL SULFATE
  14. SPIRONOLACT [Concomitant]
     Active Substance: SPIRONOLACTONE

REACTIONS (1)
  - Hospitalisation [None]
